FAERS Safety Report 8913601 (Version 3)
Quarter: 2012Q4

REPORT INFORMATION
  Report Type: 
  Country: SE (occurrence: SE)
  Receive Date: 20121119
  Receipt Date: 20121227
  Transmission Date: 20130627
  Serious: Yes (Hospitalization, Other)
  Sender: FDA-Public Use
  Company Number: SE-JNJFOC-20121106126

PATIENT
  Age: 73 Year
  Sex: Female

DRUGS (9)
  1. XARELTO [Suspect]
     Indication: THROMBOSIS PROPHYLAXIS
     Route: 048
     Dates: start: 20120904, end: 20120909
  2. XARELTO [Suspect]
     Indication: KNEE OPERATION
     Route: 048
     Dates: start: 20120904, end: 20120909
  3. NAPROXEN [Interacting]
     Indication: PROCEDURAL PAIN
     Route: 065
     Dates: start: 2012, end: 2012
  4. TROMBYL [Interacting]
     Indication: PRODUCT USED FOR UNKNOWN INDICATION
     Route: 048
  5. FRAGMINE [Concomitant]
     Indication: KNEE ARTHROPLASTY
     Route: 058
     Dates: start: 20120911
  6. SALURES [Concomitant]
     Route: 065
  7. SPIRONOLAKTON [Concomitant]
     Route: 065
  8. LEVAXIN [Concomitant]
     Indication: HYPOTHYROIDISM
     Route: 065
  9. VOLTAREN [Concomitant]
     Route: 054

REACTIONS (5)
  - Gastric ulcer [Recovered/Resolved]
  - Haematemesis [Recovered/Resolved]
  - Melaena [Recovered/Resolved]
  - Procedural nausea [Unknown]
  - Drug interaction [Unknown]
